FAERS Safety Report 5738290-5 (Version None)
Quarter: 2008Q2

REPORT INFORMATION
  Report Type: 
  Country: None (occurrence: None)
  Receive Date: 20080514
  Receipt Date: 20080509
  Transmission Date: 20081010
  Serious: Yes (Other)
  Sender: FDA-Public Use
  Company Number: US-ABBOTT-08P-163-0451417-00

PATIENT
  Sex: Female
  Weight: 90.8 kg

DRUGS (2)
  1. HUMIRA [Suspect]
     Indication: CROHN'S DISEASE
     Dosage: SHOT
     Route: 065
     Dates: end: 20080404
  2. HUMIRA [Suspect]
     Route: 065
     Dates: start: 20061001

REACTIONS (1)
  - OPTIC NEURITIS [None]
